FAERS Safety Report 24937236 (Version 1)
Quarter: 2025Q1

REPORT INFORMATION
  Report Type: Spontaneous
  Country: RO (occurrence: RO)
  Receive Date: 20250206
  Receipt Date: 20250206
  Transmission Date: 20250408
  Serious: Yes (Death, Other)
  Sender: TAKEDA
  Company Number: RO-TAKEDA-2025TUS012634

PATIENT
  Age: 71 Year
  Sex: Male

DRUGS (1)
  1. ENTYVIO [Suspect]
     Active Substance: VEDOLIZUMAB
     Indication: Product used for unknown indication

REACTIONS (5)
  - Death [Fatal]
  - Crohn^s disease [Unknown]
  - Lung neoplasm malignant [Unknown]
  - Prostatic adenoma [Unknown]
  - Hypertension [Unknown]

NARRATIVE: CASE EVENT DATE: 20231201
